FAERS Safety Report 6029508-2 (Version None)
Quarter: 2009Q1

REPORT INFORMATION
  Report Type: 
  Country: None (occurrence: None)
  Receive Date: 20090106
  Receipt Date: 20081231
  Transmission Date: 20090719
  Serious: Yes (Hospitalization)
  Sender: FDA-Public Use
  Company Number: US-GILEAD-2009-0019678

PATIENT
  Sex: Female
  Weight: 77.18 kg

DRUGS (7)
  1. LETAIRIS [Suspect]
     Indication: PULMONARY HYPERTENSION
     Route: 048
     Dates: start: 20081101
  2. WARFARIN SODIUM [Concomitant]
     Route: 048
  3. HYDROCHLOROTHIAZIDE [Concomitant]
     Route: 048
  4. ATACAND [Concomitant]
     Route: 048
  5. LABETALOL [Concomitant]
     Route: 048
  6. VERAPAMIL [Concomitant]
  7. ASPIRIN [Concomitant]
     Route: 048

REACTIONS (1)
  - SYNCOPE [None]
